FAERS Safety Report 18201363 (Version 1)
Quarter: 2020Q3

REPORT INFORMATION
  Report Type: Spontaneous
  Country: CN (occurrence: CN)
  Receive Date: 20200827
  Receipt Date: 20200827
  Transmission Date: 20201103
  Serious: Yes (Hospitalization, Other)
  Sender: FDA-Public Use
  Company Number: CN-009507513-2008CHN011625

PATIENT
  Age: 74 Year
  Sex: Female
  Weight: 45 kg

DRUGS (10)
  1. REMERON SOLTAB [Suspect]
     Active Substance: MIRTAZAPINE
     Indication: ANXIETY
  2. REMERON SOLTAB [Suspect]
     Active Substance: MIRTAZAPINE
     Indication: SLEEP DISORDER
  3. CLONAZEPAM. [Suspect]
     Active Substance: CLONAZEPAM
     Indication: SLEEP DISORDER
     Dosage: 1MG/DAY (QD)
     Route: 048
     Dates: start: 20200719
  4. REMERON SOLTAB [Suspect]
     Active Substance: MIRTAZAPINE
     Indication: ANTIDEPRESSANT THERAPY
     Dosage: 45 MILLIGRAM, QD (ALSO REPORTED AS 7.5 ? 45 MG/DAY)
     Route: 048
     Dates: start: 20140201, end: 20200725
  5. CLONAZEPAM. [Suspect]
     Active Substance: CLONAZEPAM
     Indication: ANXIETY
     Dosage: 2?4 MG/DAY (QD)
     Route: 048
     Dates: start: 20140201
  6. CLONAZEPAM. [Suspect]
     Active Substance: CLONAZEPAM
     Indication: MOOD ALTERED
  7. OLANZAPINE. [Concomitant]
     Active Substance: OLANZAPINE
     Indication: PSYCHOTIC DISORDER
     Dosage: 5 MG 0?0.25?0?0.25, ALSO REPORTED AS 1.25 MILLIGRAM, BID
     Route: 048
     Dates: start: 20200720, end: 20200818
  8. REMERON SOLTAB [Suspect]
     Active Substance: MIRTAZAPINE
     Indication: MOOD ALTERED
  9. MIRTAZAPINE. [Suspect]
     Active Substance: MIRTAZAPINE
     Indication: ANTIDEPRESSANT THERAPY
     Dosage: 30 MILLIGRAM, QD
     Route: 048
     Dates: start: 20200725, end: 20200730
  10. VENLAFAXINE HYDROCHLORIDE. [Concomitant]
     Active Substance: VENLAFAXINE HYDROCHLORIDE
     Indication: MOOD ALTERED
     Dosage: 75 MILLIGRAM, QD
     Route: 048
     Dates: start: 20200718, end: 20200818

REACTIONS (3)
  - Cardiac dysfunction [Unknown]
  - Depression [Unknown]
  - Restless legs syndrome [Recovered/Resolved]

NARRATIVE: CASE EVENT DATE: 20200725
